FAERS Safety Report 7164249-X (Version None)
Quarter: 2010Q4

REPORT INFORMATION
  Report Type: 
  Country: None (occurrence: None)
  Receive Date: 20101123
  Receipt Date: 20101008
  Transmission Date: 20110411
  Serious: No
  Sender: FDA-Public Use
  Company Number: 8052444

PATIENT
  Sex: Female

DRUGS (2)
  1. CERTOLIZUMAB PEGOL [Suspect]
     Indication: CROHN'S DISEASE
     Dosage: 200 MG 1X/2 WEEKS; SUBCUTANEOUS
     Route: 058
     Dates: start: 20090217, end: 20090901
  2. PREDNISONE [Concomitant]

REACTIONS (1)
  - PREGNANCY [None]
